FAERS Safety Report 8182175-4 (Version None)
Quarter: 2012Q1

REPORT INFORMATION
  Report Type: 
  Country: None (occurrence: None)
  Receive Date: 20120302
  Receipt Date: 20120222
  Transmission Date: 20120608
  Serious: Yes (Hospitalization)
  Sender: FDA-Public Use
  Company Number: BR-ASTRAZENECA-2012SE12926

PATIENT
  Age: 80 Year
  Sex: Female
  Weight: 76 kg

DRUGS (4)
  1. VALTRIAN [Concomitant]
     Indication: HYPERTENSION
     Route: 048
  2. AMIODARONE HYDROCHLORIDE [Concomitant]
     Indication: ARRHYTHMIA
     Route: 048
  3. VECASTEN [Concomitant]
     Indication: VARICOSE VEIN
     Route: 048
  4. SYMBICORT [Suspect]
     Indication: ASTHMA
     Dosage: 160/4.5 MCG, UNKNOWN
     Route: 055
     Dates: start: 20070101

REACTIONS (2)
  - LABYRINTHITIS [None]
  - BENIGN NEOPLASM OF SPINAL CORD [None]
